FAERS Safety Report 5282862-1 (Version None)
Quarter: 2007Q1

REPORT INFORMATION
  Report Type: 
  Country: None (occurrence: None)
  Receive Date: 20070329
  Receipt Date: 20070329
  Transmission Date: 20070707
  Serious: Yes (Other)
  Sender: FDA-Public Use
  Company Number: None

PATIENT
  Age: 67 Year
  Sex: Female
  Weight: 97.977 kg

DRUGS (1)
  1. BYETTA [Suspect]
     Indication: DIABETES MELLITUS NON-INSULIN-DEPENDENT
     Dosage: ONE PRE MEASURED INJECTION BID SQ
     Route: 058
     Dates: start: 20061128, end: 20070228

REACTIONS (6)
  - CHROMATURIA [None]
  - DIARRHOEA [None]
  - INFLUENZA [None]
  - MALAISE [None]
  - RETCHING [None]
  - VOMITING [None]
